FAERS Safety Report 8740157 (Version 3)
Quarter: 2013Q4

REPORT INFORMATION
  Report Type: Spontaneous
  Country: BR (occurrence: BR)
  Receive Date: 20120823
  Receipt Date: 20131217
  Transmission Date: 20140711
  Serious: Yes (Hospitalization)
  Sender: FDA-Public Use
  Company Number: BR-009507513-1208BRA007509

PATIENT
  Sex: Female
  Weight: 60 kg

DRUGS (3)
  1. VICTRELIS [Suspect]
     Indication: HEPATITIS
     Dosage: 800 MG, TID
     Route: 048
     Dates: start: 201205, end: 201206
  2. RIBAVIRIN [Suspect]
     Indication: HEPATITIS
     Dosage: 2 DF, BID
     Route: 048
     Dates: end: 201206
  3. INTERFERON (UNSPECIFIED) [Concomitant]
     Indication: HEPATITIS
     Dosage: 80 MICROGRAM, UNKNOWN
     Route: 065
     Dates: end: 201206

REACTIONS (3)
  - Depression [Recovered/Resolved]
  - Panic attack [Recovered/Resolved]
  - Apparent death [Recovered/Resolved]
